FAERS Safety Report 8024819-3 (Version None)
Quarter: 2012Q1

REPORT INFORMATION
  Report Type: 
  Country: None (occurrence: None)
  Receive Date: 20120105
  Receipt Date: 20111230
  Transmission Date: 20120608
  Serious: Yes (Hospitalization)
  Sender: FDA-Public Use
  Company Number: FR-GILEAD-2012-0048699

PATIENT
  Sex: Female

DRUGS (9)
  1. CIMETIDINE [Suspect]
     Dosage: 200 MG, BID
     Route: 048
     Dates: start: 20080101
  2. TRANXENE [Suspect]
     Dosage: 5 MG, UNK
     Route: 048
     Dates: start: 20080101
  3. GLEEVEC [Concomitant]
     Dosage: UNK
     Dates: end: 20111129
  4. HYDREA [Concomitant]
     Dosage: UNK
     Dates: start: 20111129
  5. ESCITALOPRAM OXALATE [Concomitant]
     Indication: DEPRESSION
  6. ISENTRESS [Suspect]
     Dosage: 400 MG, BID
     Route: 048
     Dates: start: 20101101
  7. ASPIRIN [Concomitant]
     Dosage: UNK
     Dates: start: 20111001
  8. ALLOPURINOL [Concomitant]
     Indication: CHRONIC MYELOID LEUKAEMIA
     Dosage: UNK
     Dates: start: 20111001
  9. TRUVADA [Suspect]
     Indication: HIV INFECTION
     Dosage: 1 DF, UNK
     Dates: start: 20101101

REACTIONS (3)
  - MUSCULAR WEAKNESS [None]
  - VERTIGO [None]
  - ASTHENIA [None]
